FAERS Safety Report 9265207 (Version 2)
Quarter: 2013Q2

REPORT INFORMATION
  Report Type: Spontaneous
  Country: US (occurrence: US)
  Receive Date: 20130501
  Receipt Date: 20130624
  Transmission Date: 20140414
  Serious: Yes (Hospitalization, Other)
  Sender: FDA-Public Use
  Company Number: US-TEVA-400767USA

PATIENT
  Age: 31 Year
  Sex: Female

DRUGS (1)
  1. AMPHETAMINE W/DEXTROAMPHETAMINE [Suspect]
     Indication: ATTENTION DEFICIT/HYPERACTIVITY DISORDER

REACTIONS (12)
  - Mania [Unknown]
  - Schizophrenia [Unknown]
  - Bipolar disorder [Unknown]
  - Drug dependence [Unknown]
  - Activities of daily living impaired [Unknown]
  - Aggression [Unknown]
  - Abnormal behaviour [Unknown]
  - Job dissatisfaction [Unknown]
  - Treatment noncompliance [Unknown]
  - Post-traumatic stress disorder [Unknown]
  - Paranoia [Unknown]
  - Memory impairment [Unknown]
